FAERS Safety Report 26141342 (Version 1)
Quarter: 2025Q4

REPORT INFORMATION
  Report Type: Spontaneous
  Country: US (occurrence: US)
  Receive Date: 20251210
  Receipt Date: 20251210
  Transmission Date: 20260117
  Serious: Yes (Other)
  Sender: AMGEN
  Company Number: US-AMGEN-USASP2025240724

PATIENT

DRUGS (2)
  1. INFLIXIMAB [Suspect]
     Active Substance: INFLIXIMAB
     Indication: Tubulointerstitial nephritis
     Dosage: 5 MILLIGRAM/KILOGRAM
     Route: 065
  2. PREDNISONE [Suspect]
     Active Substance: PREDNISONE
     Indication: Tubulointerstitial nephritis
     Dosage: UNK (QUIVALENT PREDNISONE DOSE MORE THAN OR EQUAL TO 0.5 MG/KG)
     Route: 065

REACTIONS (6)
  - Tubulointerstitial nephritis [Unknown]
  - Chronic kidney disease [Unknown]
  - Therapy non-responder [Unknown]
  - Therapy partial responder [Unknown]
  - Drug effective for unapproved indication [Unknown]
  - Off label use [Unknown]
